FAERS Safety Report 6657251-5 (Version None)
Quarter: 2010Q1

REPORT INFORMATION
  Report Type: 
  Country: None (occurrence: None)
  Receive Date: 20100325
  Receipt Date: 20100316
  Transmission Date: 20100710
  Serious: Yes (Death, Hospitalization)
  Sender: FDA-Public Use
  Company Number: DSA_42802_2010

PATIENT
  Sex: Female

DRUGS (4)
  1. XENAZINE [Suspect]
     Indication: HUNTINGTON'S CHOREA
     Dosage: 25 MG 5X/DAY ORAL
     Route: 048
     Dates: start: 20070101, end: 20100224
  2. ALPRAZOLAM [Concomitant]
  3. AMANTADINE HCL [Concomitant]
  4. TRAZODONE [Concomitant]

REACTIONS (3)
  - DYSPHAGIA [None]
  - HYPOPHAGIA [None]
  - INFECTION [None]
